FAERS Safety Report 18114504 (Version 1)
Quarter: 2020Q3

REPORT INFORMATION
  Report Type: Spontaneous
  Country: JP (occurrence: JP)
  Receive Date: 20200805
  Receipt Date: 20200805
  Transmission Date: 20201103
  Serious: Yes (Death)
  Sender: FDA-Public Use
  Company Number: JP-MALLINCKRODT-T202003887

PATIENT
  Age: 82 Year
  Sex: Male

DRUGS (2)
  1. INOFLO [Suspect]
     Active Substance: NITRIC OXIDE
     Indication: HYPOXIA
  2. INOFLO [Suspect]
     Active Substance: NITRIC OXIDE
     Indication: COVID-19
     Dosage: UNK (INHALATION)
     Route: 055
     Dates: start: 20200507, end: 20200512

REACTIONS (4)
  - Condition aggravated [Fatal]
  - Product use issue [Unknown]
  - Acute respiratory distress syndrome [Fatal]
  - Product use in unapproved indication [Unknown]

NARRATIVE: CASE EVENT DATE: 20200507
